FAERS Safety Report 19961367 (Version 1)
Quarter: 2021Q4

REPORT INFORMATION
  Report Type: Spontaneous
  Country: TW (occurrence: TW)
  Receive Date: 20211017
  Receipt Date: 20211017
  Transmission Date: 20220303
  Serious: Yes (Other)
  Sender: FDA-Public Use
  Company Number: TW-002147023-NVSC2021TW231302

PATIENT
  Sex: Female

DRUGS (18)
  1. RANIBIZUMAB [Suspect]
     Active Substance: RANIBIZUMAB
     Indication: Product used for unknown indication
     Dosage: UNK (OU)
     Route: 031
     Dates: start: 20190508
  2. RANIBIZUMAB [Suspect]
     Active Substance: RANIBIZUMAB
     Dosage: UNK (OU)
     Route: 031
     Dates: start: 20190612
  3. RANIBIZUMAB [Suspect]
     Active Substance: RANIBIZUMAB
     Dosage: UNK (OU)
     Route: 031
     Dates: start: 20190710
  4. RANIBIZUMAB [Suspect]
     Active Substance: RANIBIZUMAB
     Dosage: UNK (OU)
     Route: 031
     Dates: start: 20190927
  5. RANIBIZUMAB [Suspect]
     Active Substance: RANIBIZUMAB
     Dosage: UNK (OU)
     Route: 031
     Dates: start: 20191127
  6. RANIBIZUMAB [Suspect]
     Active Substance: RANIBIZUMAB
     Dosage: UNK (OU)
     Route: 031
     Dates: start: 20191225
  7. RANIBIZUMAB [Suspect]
     Active Substance: RANIBIZUMAB
     Dosage: UNK (OU)
     Route: 031
     Dates: start: 20200205
  8. RANIBIZUMAB [Suspect]
     Active Substance: RANIBIZUMAB
     Dosage: UNK (OU)
     Route: 031
     Dates: start: 20200410
  9. RANIBIZUMAB [Suspect]
     Active Substance: RANIBIZUMAB
     Dosage: UNK (OU)
     Route: 031
     Dates: start: 20200527
  10. RANIBIZUMAB [Suspect]
     Active Substance: RANIBIZUMAB
     Dosage: UNK (OU)
     Route: 031
     Dates: start: 20200807
  11. RANIBIZUMAB [Suspect]
     Active Substance: RANIBIZUMAB
     Dosage: UNK (OU)
     Route: 031
     Dates: start: 20200911
  12. RANIBIZUMAB [Suspect]
     Active Substance: RANIBIZUMAB
     Dosage: UNK (OU)
     Route: 031
     Dates: start: 20201030
  13. RANIBIZUMAB [Suspect]
     Active Substance: RANIBIZUMAB
     Dosage: UNK (OU)
     Route: 031
     Dates: start: 20201211
  14. RANIBIZUMAB [Suspect]
     Active Substance: RANIBIZUMAB
     Dosage: UNK (OU)
     Route: 031
     Dates: start: 20210219
  15. RANIBIZUMAB [Suspect]
     Active Substance: RANIBIZUMAB
     Dosage: UNK (OU)
     Route: 031
     Dates: start: 20210326
  16. RANIBIZUMAB [Suspect]
     Active Substance: RANIBIZUMAB
     Dosage: UNK (OU)
     Route: 031
     Dates: start: 20210504
  17. RANIBIZUMAB [Suspect]
     Active Substance: RANIBIZUMAB
     Dosage: UNK (OU)
     Route: 031
     Dates: start: 20210730
  18. RANIBIZUMAB [Suspect]
     Active Substance: RANIBIZUMAB
     Dosage: UNK (OS)
     Route: 031
     Dates: start: 20210903

REACTIONS (1)
  - Polypoidal choroidal vasculopathy [Unknown]
